FAERS Safety Report 24019619 (Version 1)
Quarter: 2024Q2

REPORT INFORMATION
  Report Type: Spontaneous
  Country: US (occurrence: US)
  Receive Date: 20240627
  Receipt Date: 20240627
  Transmission Date: 20240716
  Serious: No
  Sender: FDA-Public Use
  Company Number: US-LUNDBECK-DKLU3077993

PATIENT

DRUGS (2)
  1. NORTHERA [Suspect]
     Active Substance: DROXIDOPA
     Indication: Orthostatic hypotension
     Dosage: 100 003
     Route: 048
     Dates: start: 20240307
  2. DROXIDOPA [Concomitant]
     Active Substance: DROXIDOPA
     Indication: Orthostatic hypotension
     Dosage: 300 003

REACTIONS (3)
  - Headache [Unknown]
  - Weight increased [Unknown]
  - Product dose omission issue [Unknown]
